FAERS Safety Report 8174893-9 (Version None)
Quarter: 2012Q1

REPORT INFORMATION
  Report Type: 
  Country: None (occurrence: None)
  Receive Date: 20120229
  Receipt Date: 20110602
  Transmission Date: 20120608
  Serious: No
  Sender: FDA-Public Use
  Company Number: US-GLAXOSMITHKLINE-A0930070A

PATIENT
  Age: 71 Year
  Sex: Female

DRUGS (4)
  1. SIMVASTATIN [Concomitant]
  2. AGGRENOX [Concomitant]
  3. VALTREX [Suspect]
     Indication: GENITAL HERPES
     Dosage: 1G PER DAY
     Route: 048
     Dates: start: 20070101
  4. MULTI-VITAMIN [Concomitant]

REACTIONS (3)
  - GENITAL HERPES [None]
  - PRODUCT QUALITY ISSUE [None]
  - DRUG INEFFECTIVE [None]
